FAERS Safety Report 9212809 (Version 2)
Quarter: 2013Q2

REPORT INFORMATION
  Report Type: Spontaneous
  Country: MA (occurrence: MA)
  Receive Date: 20130405
  Receipt Date: 20130502
  Transmission Date: 20140414
  Serious: Yes (Other)
  Sender: FDA-Public Use
  Company Number: MA-RANBAXY-2013RR-66865

PATIENT
  Age: 85 Year
  Sex: Male

DRUGS (4)
  1. METFORMIN [Suspect]
     Indication: TYPE 2 DIABETES MELLITUS
     Dosage: 2 G/DAY
     Route: 048
  2. PARACETAMOL [Concomitant]
     Indication: PYREXIA
     Dosage: 500 MG, TID
     Route: 065
  3. AMLODIPINE [Concomitant]
     Indication: HYPERTENSION
     Dosage: 10 MG/DAY
     Route: 065
  4. AMOXICILLIN [Concomitant]
     Indication: PYREXIA
     Dosage: 1 G, BID
     Route: 065

REACTIONS (5)
  - Hypoglycaemia [Recovered/Resolved]
  - Delirium [Recovered/Resolved]
  - Agitation [Recovered/Resolved]
  - Sleep disorder [Recovered/Resolved]
  - Cognitive disorder [Recovered/Resolved]
